FAERS Safety Report 7658832-2 (Version None)
Quarter: 2011Q3

REPORT INFORMATION
  Report Type: 
  Country: None (occurrence: None)
  Receive Date: 20110805
  Receipt Date: 20110804
  Transmission Date: 20111222
  Serious: Yes (Other)
  Sender: FDA-Public Use
  Company Number: AU-JNJFOC-20110706373

PATIENT
  Sex: Female

DRUGS (8)
  1. SIMPONI [Suspect]
     Route: 058
     Dates: start: 20110520
  2. FOLIC ACID [Concomitant]
  3. PREDNISONE [Concomitant]
  4. COLGOUT [Concomitant]
  5. METHOTREXATE [Concomitant]
  6. PLAQUENIL [Concomitant]
  7. SIMPONI [Suspect]
     Indication: RHEUMATOID ARTHRITIS
     Route: 058
     Dates: start: 20110424
  8. SIMPONI [Suspect]
     Route: 058
     Dates: start: 20110619

REACTIONS (1)
  - POSTOPERATIVE WOUND INFECTION [None]
